FAERS Safety Report 17742865 (Version 1)
Quarter: 2020Q2

REPORT INFORMATION
  Report Type: Spontaneous
  Country: BR (occurrence: BR)
  Receive Date: 20200504
  Receipt Date: 20200504
  Transmission Date: 20200714
  Serious: Yes (Hospitalization)
  Sender: FDA-Public Use
  Company Number: BR-PFIZER INC-2020174257

PATIENT
  Sex: Female

DRUGS (1)
  1. LONITEN [Suspect]
     Active Substance: MINOXIDIL

REACTIONS (1)
  - Blood pressure abnormal [Unknown]
